FAERS Safety Report 24869928 (Version 1)
Quarter: 2025Q1

REPORT INFORMATION
  Report Type: Report from Study
  Country: MY (occurrence: MY)
  Receive Date: 20250121
  Receipt Date: 20250121
  Transmission Date: 20250408
  Serious: Yes (Death, Hospitalization, Other)
  Sender: PFIZER
  Company Number: MY-TAKEDA-2024TUS008841

PATIENT
  Age: 58 Year
  Sex: Female

DRUGS (1)
  1. ADCETRIS [Suspect]
     Active Substance: BRENTUXIMAB VEDOTIN
     Indication: Hodgkin^s disease refractory
     Route: 042
     Dates: start: 20230607

REACTIONS (2)
  - Renal failure [Fatal]
  - Pneumonia [Fatal]
